FAERS Safety Report 11081853 (Version 3)
Quarter: 2016Q4

REPORT INFORMATION
  Report Type: Spontaneous
  Country: DK (occurrence: DK)
  Receive Date: 20150501
  Receipt Date: 20161107
  Transmission Date: 20170206
  Serious: Yes (Other)
  Sender: FDA-Public Use
  Company Number: DK-TEVA-558179ISR

PATIENT
  Age: 63 Year
  Sex: Male
  Weight: 103 kg

DRUGS (8)
  1. REMICADE [Suspect]
     Active Substance: INFLIXIMAB
     Indication: PSORIATIC ARTHROPATHY
     Dosage: DOSAGE: 500/540 MG
     Route: 042
     Dates: start: 20131129, end: 20140103
  2. SIMPONI [Suspect]
     Active Substance: GOLIMUMAB
     Indication: PSORIATIC ARTHROPATHY
     Route: 058
     Dates: start: 20150216, end: 20150216
  3. ENBREL [Suspect]
     Active Substance: ETANERCEPT
     Indication: PSORIATIC ARTHROPATHY
     Route: 058
     Dates: start: 20140411, end: 20150223
  4. METHOTREXATE. [Suspect]
     Active Substance: METHOTREXATE
     Indication: PSORIATIC ARTHROPATHY
     Route: 048
     Dates: start: 2008, end: 2012
  5. HUMIRA [Concomitant]
     Active Substance: ADALIMUMAB
     Indication: PSORIATIC ARTHROPATHY
     Route: 058
     Dates: start: 20150216, end: 20150301
  6. METHOTREXATE. [Suspect]
     Active Substance: METHOTREXATE
     Dates: start: 201312, end: 201401
  7. SIMPONI [Suspect]
     Active Substance: GOLIMUMAB
     Indication: PSORIATIC ARTHROPATHY
     Route: 058
     Dates: start: 20140220, end: 20140411
  8. REMICADE [Suspect]
     Active Substance: INFLIXIMAB
     Dates: start: 201404, end: 201502

REACTIONS (4)
  - Haematuria [Unknown]
  - Neobladder surgery [Not Recovered/Not Resolved]
  - Bladder transitional cell carcinoma stage II [Recovered/Resolved with Sequelae]
  - Urinary cystectomy [Recovered/Resolved]

NARRATIVE: CASE EVENT DATE: 201503
